FAERS Safety Report 4614820-1 (Version None)
Quarter: 2005Q1

REPORT INFORMATION
  Report Type: 
  Country: None (occurrence: None)
  Receive Date: 20050322
  Receipt Date: 20050127
  Transmission Date: 20050727
  Serious: Yes (Hospitalization)
  Sender: FDA-Public Use
  Company Number: US-BRISTOL-MYERS SQUIBB COMPANY-12840773

PATIENT
  Age: 60 Year
  Sex: Female

DRUGS (6)
  1. ABILIFY [Suspect]
     Indication: SCHIZOPHRENIA
     Dosage: 10 MG 02-DEC-2004, DECREASED TO 5 MG AS OF 26-JAN-05
     Route: 048
     Dates: start: 20041201
  2. ABILIFY [Suspect]
     Indication: ABNORMAL BEHAVIOUR
     Dosage: 10 MG 02-DEC-2004, DECREASED TO 5 MG AS OF 26-JAN-05
     Route: 048
     Dates: start: 20041201
  3. TRAZODONE HCL [Concomitant]
  4. GLUCOTROL [Concomitant]
  5. MIACALCIN [Concomitant]
  6. CLONAZEPAM [Concomitant]

REACTIONS (1)
  - BODY TEMPERATURE DECREASED [None]
